FAERS Safety Report 18601350 (Version 4)
Quarter: 2021Q1

REPORT INFORMATION
  Report Type: Spontaneous
  Country: GB (occurrence: GB)
  Receive Date: 20201210
  Receipt Date: 20210106
  Transmission Date: 20210419
  Serious: Yes (Hospitalization)
  Sender: FDA-Public Use
  Company Number: GB-MYLANLABS-2020M1100705

PATIENT
  Age: 62 Year
  Sex: Male

DRUGS (1)
  1. CLOZARIL [Suspect]
     Active Substance: CLOZAPINE
     Indication: SCHIZOPHRENIA
     Dosage: UNK
     Route: 048
     Dates: start: 20090823

REACTIONS (10)
  - Neutrophil count decreased [Recovered/Resolved]
  - Hip fracture [Unknown]
  - Lymphocyte count decreased [Unknown]
  - Haemoglobin decreased [Unknown]
  - White blood cell count decreased [Recovered/Resolved]
  - Eosinophil count decreased [Not Recovered/Not Resolved]
  - Platelet count increased [Recovered/Resolved]
  - COVID-19 [Unknown]
  - Red blood cell count decreased [Unknown]
  - Haematocrit decreased [Unknown]

NARRATIVE: CASE EVENT DATE: 20201215
